FAERS Safety Report 6376706-4 (Version None)
Quarter: 2009Q3

REPORT INFORMATION
  Report Type: 
  Country: None (occurrence: None)
  Receive Date: 20090924
  Receipt Date: 20090924
  Transmission Date: 20100115
  Serious: No
  Sender: FDA-Public Use
  Company Number: None

PATIENT
  Sex: Female
  Weight: 58.9676 kg

DRUGS (1)
  1. CATAPRES-TTS-1 [Suspect]
     Indication: BURNS THIRD DEGREE
     Dosage: 1 PATCH PER WK
     Dates: start: 20081015, end: 20081022

REACTIONS (3)
  - APPLICATION SITE BURN [None]
  - APPLICATION SITE SCAR [None]
  - BURNS THIRD DEGREE [None]
